FAERS Safety Report 12572204 (Version 1)
Quarter: 2016Q3

REPORT INFORMATION
  Report Type: Spontaneous
  Country: ES (occurrence: ES)
  Receive Date: 20160719
  Receipt Date: 20160719
  Transmission Date: 20161109
  Serious: Yes (Hospitalization)
  Sender: FDA-Public Use
  Company Number: ES-SA-2015SA122404

PATIENT
  Age: 27 Month
  Sex: Female
  Weight: 13 kg

DRUGS (5)
  1. CEFEPIME [Suspect]
     Active Substance: CEFEPIME HYDROCHLORIDE
     Indication: PYREXIA
     Dosage: 650MG/8H
     Route: 042
     Dates: start: 20140924, end: 20140928
  2. FASTURTEC [Suspect]
     Active Substance: RASBURICASE
     Indication: ACUTE LYMPHOCYTIC LEUKAEMIA
     Dosage: 1.5MG EN 5 ML SF EN 30?
     Route: 042
     Dates: start: 20140924, end: 20140924
  3. PREDNISONA [Concomitant]
     Active Substance: PREDNISONE
     Indication: ACUTE LYMPHOCYTIC LEUKAEMIA
     Dosage: 12MG/8H
     Route: 042
     Dates: start: 20140925
  4. AMOXICILLIN. [Concomitant]
     Active Substance: AMOXICILLIN
  5. RANITIDINE. [Concomitant]
     Active Substance: RANITIDINE
     Indication: PROPHYLAXIS AGAINST GASTROINTESTINAL ULCER
     Dosage: 20MG/6H
     Route: 042
     Dates: start: 20140925

REACTIONS (1)
  - Hepatitis acute [Recovered/Resolved]

NARRATIVE: CASE EVENT DATE: 20140928
